FAERS Safety Report 8440509-7 (Version None)
Quarter: 2012Q2

REPORT INFORMATION
  Report Type: 
  Country: None (occurrence: None)
  Receive Date: 20120615
  Receipt Date: 20120613
  Transmission Date: 20120825
  Serious: Yes (Hospitalization)
  Sender: FDA-Public Use
  Company Number: RS-FRI-1000029503

PATIENT
  Age: 60 Year
  Sex: Male

DRUGS (1)
  1. NEBIVOLOL [Suspect]
     Indication: ESSENTIAL HYPERTENSION
     Dosage: 5 MG
     Dates: start: 20040302, end: 20040316

REACTIONS (1)
  - HEPATOTOXICITY [None]
